FAERS Safety Report 24278266 (Version 1)
Quarter: 2024Q3

REPORT INFORMATION
  Report Type: Spontaneous
  Country: US (occurrence: US)
  Receive Date: 20240903
  Receipt Date: 20240903
  Transmission Date: 20241017
  Serious: No
  Sender: PFIZER
  Company Number: US-PFIZER INC-PV202400080509

PATIENT
  Age: 60 Year
  Sex: Female

DRUGS (3)
  1. TUKYSA [Suspect]
     Active Substance: TUCATINIB
     Dosage: 300 MG, 2X/DAY
     Route: 048
  2. TUKYSA [Suspect]
     Active Substance: TUCATINIB
     Dosage: 150 MG; 1 TABLET TWICE DAILY
  3. TUKYSA [Suspect]
     Active Substance: TUCATINIB
     Dosage: TAKE 2 TABLETS BY MOUTH TWICE A DAY
     Route: 048

REACTIONS (1)
  - Diarrhoea [Unknown]
